FAERS Safety Report 16574990 (Version 1)
Quarter: 2019Q3

REPORT INFORMATION
  Report Type: Spontaneous
  Country: TR (occurrence: TR)
  Receive Date: 20190715
  Receipt Date: 20190715
  Transmission Date: 20191004
  Serious: Yes (Hospitalization, Other)
  Sender: FDA-Public Use
  Company Number: PHHY2019TR152610

PATIENT
  Age: 75 Year
  Sex: Male

DRUGS (3)
  1. METHOTREXATE. [Suspect]
     Active Substance: METHOTREXATE
     Indication: RHEUMATOID ARTHRITIS
     Dosage: UNK
     Route: 065
  2. HYDROXYCHLOROQUINE [Suspect]
     Active Substance: HYDROXYCHLOROQUINE
     Indication: RHEUMATOID ARTHRITIS
     Route: 065
  3. INFLIXIMAB [Suspect]
     Active Substance: INFLIXIMAB
     Indication: RHEUMATOID ARTHRITIS
     Dosage: UNK
     Route: 065
     Dates: start: 2011

REACTIONS (11)
  - Pleural effusion [Unknown]
  - Pyrexia [Unknown]
  - Rheumatoid arthritis [Unknown]
  - Lymphadenopathy [Unknown]
  - Systemic bacterial infection [Unknown]
  - Nodule [Unknown]
  - Hydrocele [Unknown]
  - Ocular lymphoma [Unknown]
  - Central nervous system lymphoma [Unknown]
  - Fibrosis [Unknown]
  - Diffuse large B-cell lymphoma [Unknown]

NARRATIVE: CASE EVENT DATE: 2011
